FAERS Safety Report 18446308 (Version 1)
Quarter: 2020Q4

REPORT INFORMATION
  Report Type: Spontaneous
  Country: US (occurrence: US)
  Receive Date: 20201030
  Receipt Date: 20201030
  Transmission Date: 20210114
  Serious: Yes (Life-Threatening, Hospitalization)
  Sender: FDA-Public Use
  Company Number: US-MICRO LABS LIMITED-ML2020-03170

PATIENT
  Age: 74 Year
  Sex: Male

DRUGS (9)
  1. MIDAZOLAM. [Suspect]
     Active Substance: MIDAZOLAM
     Indication: STATUS EPILEPTICUS
     Dosage: 2 MG/HOUR
  2. LACOSAMIDE. [Suspect]
     Active Substance: LACOSAMIDE
  3. MIDAZOLAM. [Suspect]
     Active Substance: MIDAZOLAM
     Dosage: TITRATED UP TO A DOSE OF 15 MG/HOUR
  4. LACOSAMIDE. [Suspect]
     Active Substance: LACOSAMIDE
     Indication: STATUS EPILEPTICUS
     Dosage: LOADING DOSE
  5. LEVETIRACETAM. [Suspect]
     Active Substance: LEVETIRACETAM
  6. FOSPHENYTOIN [Suspect]
     Active Substance: FOSPHENYTOIN
     Indication: STATUS EPILEPTICUS
     Dosage: UNKNOWN DOSE
     Route: 042
  7. FOSPHENYTOIN [Suspect]
     Active Substance: FOSPHENYTOIN
  8. LEVETIRACETAM. [Suspect]
     Active Substance: LEVETIRACETAM
     Indication: STATUS EPILEPTICUS
     Dosage: 1 GRAM WAS ADMINISTERED AS A LOADING DOSE
  9. LORAZEPAM. [Suspect]
     Active Substance: LORAZEPAM
     Indication: STATUS EPILEPTICUS
     Dosage: 4 GRAMS
     Route: 042

REACTIONS (1)
  - Drug ineffective [Unknown]
